FAERS Safety Report 26155733 (Version 1)
Quarter: 2025Q4

REPORT INFORMATION
  Report Type: Spontaneous
  Country: US (occurrence: US)
  Receive Date: 20251215
  Receipt Date: 20251215
  Transmission Date: 20260118
  Serious: No
  Sender: ALKEM
  Company Number: None

PATIENT
  Age: 67 Year
  Sex: Female

DRUGS (5)
  1. TACROLIMUS [Suspect]
     Active Substance: TACROLIMUS
     Indication: Lichen planopilaris
     Dosage: UNK
     Route: 065
  2. TACROLIMUS [Suspect]
     Active Substance: TACROLIMUS
     Dosage: UNK (OINTMENT)
     Route: 061
  3. MINOXIDIL [Suspect]
     Active Substance: MINOXIDIL
     Indication: Lichen planopilaris
     Dosage: UNK
     Route: 048
  4. PIMECROLIMUS [Suspect]
     Active Substance: PIMECROLIMUS
     Indication: Lichen planopilaris
     Dosage: UNK
     Route: 061
  5. PIMECROLIMUS [Suspect]
     Active Substance: PIMECROLIMUS
     Dosage: UNK
     Route: 061

REACTIONS (2)
  - Drug hypersensitivity [Unknown]
  - Dermatitis contact [Recovered/Resolved]
